FAERS Safety Report 22078257 (Version 1)
Quarter: 2023Q1

REPORT INFORMATION
  Report Type: Spontaneous
  Country: US (occurrence: None)
  Receive Date: 20230308
  Receipt Date: 20230308
  Transmission Date: 20230417
  Serious: No
  Sender: FDA-Public Use
  Company Number: None

PATIENT

DRUGS (2)
  1. MELATONIN [Suspect]
     Active Substance: MELATONIN
     Route: 048
  2. MAGNESIUM OXIDE [Suspect]
     Active Substance: MAGNESIUM OXIDE
     Route: 048

REACTIONS (3)
  - Packaging design issue [None]
  - Product barcode issue [None]
  - Circumstance or information capable of leading to medication error [None]
